FAERS Safety Report 5235957-2 (Version None)
Quarter: 2007Q1

REPORT INFORMATION
  Report Type: 
  Country: None (occurrence: None)
  Receive Date: 20070212
  Receipt Date: 20070130
  Transmission Date: 20070707
  Serious: Yes (Other)
  Sender: FDA-Public Use
  Company Number: PHEH2006US14145

PATIENT
  Sex: Male

DRUGS (4)
  1. GLEEVEC [Suspect]
     Indication: CHRONIC MYELOID LEUKAEMIA
     Dosage: 400 MG, QD
     Route: 048
     Dates: start: 20061009, end: 20061027
  2. GLEEVEC [Suspect]
     Dosage: 200 MG, QD
     Route: 048
     Dates: end: 20060101
  3. VYTORIN [Concomitant]
     Indication: DYSLIPIDAEMIA
     Dosage: 10/20 MG, QD
     Route: 048
     Dates: end: 20061218
  4. INSPRA [Concomitant]
     Indication: CARDIAC FAILURE CONGESTIVE
     Dosage: 50 MG, QD
     Route: 048
     Dates: end: 20061018

REACTIONS (4)
  - HYPERSENSITIVITY [None]
  - OEDEMA [None]
  - PRURITUS [None]
  - RASH [None]
